FAERS Safety Report 6911298-X (Version None)
Quarter: 2010Q3

REPORT INFORMATION
  Report Type: 
  Country: None (occurrence: None)
  Receive Date: 20100806
  Receipt Date: 20100725
  Transmission Date: 20110219
  Serious: Yes (Other)
  Sender: FDA-Public Use
  Company Number: PHHY2010US48406

PATIENT
  Age: 48 Year
  Sex: Male

DRUGS (10)
  1. OCTREOTIDE ACETATE [Suspect]
     Indication: HYPOGLYCAEMIA
     Dosage: 50 UG EVERY 6 HOURS
     Route: 058
  2. ATENOLOL [Concomitant]
  3. AMIODARONE HCL [Concomitant]
  4. WARFARIN [Concomitant]
  5. ESOMEPRAZOLE MAGNESIUM [Concomitant]
  6. FOLIC ACID [Concomitant]
  7. CALCITRIOL [Concomitant]
  8. ALLOPURINOL [Concomitant]
  9. MULTI-VITAMINS [Concomitant]
  10. SEVELAMER [Concomitant]

REACTIONS (3)
  - DIALYSIS [None]
  - HYPERGLYCAEMIA [None]
  - HYPERKALAEMIA [None]
